FAERS Safety Report 5081686-8 (Version None)
Quarter: 2006Q3

REPORT INFORMATION
  Report Type: 
  Country: None (occurrence: None)
  Receive Date: 20060816
  Receipt Date: 20060807
  Transmission Date: 20061208
  Serious: Yes (Other)
  Sender: FDA-Public Use
  Company Number: US-BOEHRINGER INGELHEIM PHARMACEUTICALS, INC.-2006-DE-04143GD

PATIENT

DRUGS (1)
  1. CLONIDINE [Suspect]
     Dosage: DOSE RANGED FROM 0.4 TO 1980 (MEDIAN 13) MCG/KG
     Route: 048

REACTIONS (38)
  - AGITATION [None]
  - ARRHYTHMIA [None]
  - BOWEL SOUNDS ABNORMAL [None]
  - BRADYCARDIA [None]
  - BRONCHOSPASM [None]
  - CARDIAC ARREST [None]
  - CHEST PAIN [None]
  - CHOKING [None]
  - COMA [None]
  - CONFUSIONAL STATE [None]
  - COORDINATION ABNORMAL [None]
  - COUGH [None]
  - CYANOSIS [None]
  - DIZZINESS [None]
  - DYSARTHRIA [None]
  - HYPERGLYCAEMIA [None]
  - HYPERHIDROSIS [None]
  - HYPERTENSION [None]
  - HYPERVENTILATION [None]
  - HYPOTENSION [None]
  - HYPOTHERMIA [None]
  - ILEUS [None]
  - IRRITABILITY [None]
  - LETHARGY [None]
  - MIOSIS [None]
  - MUSCULAR WEAKNESS [None]
  - MYDRIASIS [None]
  - NAUSEA [None]
  - NEUROPATHY PERIPHERAL [None]
  - PALLOR [None]
  - RESPIRATORY ARREST [None]
  - RESPIRATORY DEPRESSION [None]
  - SOMNOLENCE [None]
  - TACHYCARDIA [None]
  - TACHYPNOEA [None]
  - THROAT IRRITATION [None]
  - VERTIGO [None]
  - VOMITING [None]
